FAERS Safety Report 14272031 (Version 4)
Quarter: 2017Q4

REPORT INFORMATION
  Report Type: Report from Study
  Country: AT (occurrence: AT)
  Receive Date: 20171212
  Receipt Date: 20171221
  Transmission Date: 20180321
  Serious: Yes (Hospitalization)
  Sender: FDA-Public Use
  Company Number: AT-ROCHE-2038031

PATIENT
  Age: 74 Year
  Sex: Male
  Weight: 84 kg

DRUGS (10)
  1. ATEZOLIZUMAB. [Suspect]
     Active Substance: ATEZOLIZUMAB
     Indication: MALIGNANT URINARY TRACT NEOPLASM
     Dosage: DATE OF MOST RECENT DOSE PRIOR TO EVENT: 04/DEC/2017
     Route: 042
     Dates: start: 20170529
  2. EUTHYROX [Concomitant]
     Active Substance: LEVOTHYROXINE SODIUM
     Route: 048
     Dates: start: 20060316
  3. NORGESIC (AUSTRIA) [Concomitant]
     Dosage: DOSE: 1
     Route: 048
     Dates: start: 1998
  4. SIRDALUD [Concomitant]
     Active Substance: TIZANIDINE
     Route: 048
     Dates: start: 1998
  5. IRENAT [Concomitant]
     Active Substance: SODIUM PERCHLORATE MONOHYDRATE
     Route: 048
     Dates: start: 20171002, end: 20171002
  6. MAGNOSOLV [Concomitant]
     Route: 048
     Dates: start: 1998
  7. IRENAT [Concomitant]
     Active Substance: SODIUM PERCHLORATE MONOHYDRATE
     Route: 048
     Dates: start: 20171204, end: 20171211
  8. CALCIUM GLYCEROPHOSPHATE\CELLULOSE\POLYETHYLENE GLYCOL\SACCHARIN SODIUM\SODIUM HYDROXIDE\SODIUM LAURYL SULFATE\SODIUM MAGNESIUM SILICATE\SODIUM MONOFLUOROPHOSPHATE\SORBITOL\WATER [Concomitant]
     Active Substance: CALCIUM GLYCEROPHOSPHATE\POLYETHYLENE GLYCOLS\POWDERED CELLULOSE\SACCHARIN SODIUM DIHYDRATE\SODIUM HYDROXIDE\SODIUM LAURYL SULFATE\SODIUM MAGNESIUM SILICATE\SODIUM MONOFLUOROPHOSPHATE\SORBITOL\WATER
     Dosage: DOSE: 1 OTHER
     Route: 048
     Dates: start: 20171205, end: 20171207
  9. CIPROXIN [Concomitant]
     Active Substance: CIPROFLOXACIN
     Indication: URINARY TRACT INFECTION
     Route: 042
     Dates: start: 20171205, end: 20171207
  10. ZINNAT [Concomitant]
     Active Substance: CEFUROXIME AXETIL
     Indication: URINARY TRACT INFECTION
     Route: 048
     Dates: start: 20171207

REACTIONS (1)
  - Dizziness [Recovered/Resolved]

NARRATIVE: CASE EVENT DATE: 20171205
